FAERS Safety Report 8363148-5 (Version None)
Quarter: 2012Q2

REPORT INFORMATION
  Report Type: 
  Country: None (occurrence: None)
  Receive Date: 20120516
  Receipt Date: 20111028
  Transmission Date: 20120825
  Serious: Yes (Hospitalization)
  Sender: FDA-Public Use
  Company Number: US-ALEXION-A201101623

PATIENT
  Sex: Female

DRUGS (14)
  1. ALBUTEROL [Concomitant]
     Indication: WHEEZING
     Dosage: 90 MCG/INH, 1 PUFF
  2. NORCO [Concomitant]
     Indication: PAIN
     Dosage: 10/325 MG 1 TAB Q 4 HOURS
     Route: 048
  3. CYCLOSPORINE [Concomitant]
     Dosage: 200 MG, QPM
  4. PREDNISONE [Concomitant]
     Dosage: 10 MG QD
     Route: 048
  5. XANAX [Concomitant]
     Indication: ANXIETY
     Dosage: 0.25 MG TID
     Route: 048
  6. OMEPRAZOLE [Concomitant]
     Dosage: UNK QD
     Route: 048
  7. SYMBICORT [Concomitant]
     Dosage: 80/4.5 MCG, 2 INH,  2 X DAY
  8. FOLIC ACID [Concomitant]
     Dosage: 1 MG QD
     Route: 048
  9. VORICONAZOLE [Concomitant]
     Dosage: 300 MG BID
     Route: 048
  10. SOLIRIS [Suspect]
     Indication: PAROXYSMAL NOCTURNAL HAEMOGLOBINURIA
     Dosage: 900 MG Q2W
     Route: 042
     Dates: start: 20090301
  11. SINGULAIR [Concomitant]
     Dosage: 10 MG QD
     Route: 048
  12. CYCLOSPORINE [Concomitant]
     Dosage: 100 MG QAM
     Route: 048
  13. PREDNISONE [Concomitant]
     Dosage: 10 MG 4 X DAY
     Route: 048
  14. LEXAPRO [Concomitant]
     Dosage: 10 MG QD
     Route: 048

REACTIONS (5)
  - PNEUMONIA FUNGAL [None]
  - NAUSEA [None]
  - ANAEMIA [None]
  - ASTHMA [None]
  - DIARRHOEA [None]
